FAERS Safety Report 25946912 (Version 1)
Quarter: 2025Q4

REPORT INFORMATION
  Report Type: Spontaneous
  Country: US (occurrence: US)
  Receive Date: 20251022
  Receipt Date: 20251022
  Transmission Date: 20260118
  Serious: No
  Sender: TOLMAR
  Company Number: US-Tolmar-TLM-2025-07737

PATIENT

DRUGS (3)
  1. ELIGARD [Suspect]
     Active Substance: LEUPROLIDE ACETATE
     Indication: Prostate cancer
     Dosage: DOSE NOT ADMINISTERED?OCT-2026; SEP-2026; SEP-2026?SERIAL: 9960508619663.?GTIN: 00362935461500.
  2. ELIGARD [Suspect]
     Active Substance: LEUPROLIDE ACETATE
     Dosage: REPLACEMENT DOSE
  3. DEVICE [Suspect]
     Active Substance: DEVICE
     Indication: Prostate cancer
     Dosage: DOSE NOT ADMINISTERED?OCT-2026; SEP-2026; SEP-2026?SERIAL: 9960508619663.?GTIN: 00362935461500.

REACTIONS (2)
  - Intercepted product preparation error [Unknown]
  - Device leakage [Unknown]
